FAERS Safety Report 5684246-0 (Version None)
Quarter: 2008Q1

REPORT INFORMATION
  Report Type: 
  Country: None (occurrence: None)
  Receive Date: 20080328
  Receipt Date: 20071107
  Transmission Date: 20080703
  Serious: No
  Sender: FDA-Public Use
  Company Number: US-AMGEN-KDL251602

PATIENT
  Sex: Male

DRUGS (2)
  1. NEUPOGEN [Suspect]
     Indication: CHEMOTHERAPY
     Dates: start: 20071107
  2. NEULASTA [Suspect]
     Indication: CHEMOTHERAPY
     Dates: start: 20070101

REACTIONS (3)
  - BLOOD COUNT ABNORMAL [None]
  - DYSPNOEA [None]
  - OXYGEN SATURATION DECREASED [None]
